FAERS Safety Report 18042253 (Version 2)
Quarter: 2020Q3

REPORT INFORMATION
  Report Type: Spontaneous
  Country: NL (occurrence: NL)
  Receive Date: 20200720
  Receipt Date: 20200723
  Transmission Date: 20201103
  Serious: Yes (Other)
  Sender: FDA-Public Use
  Company Number: NL-TEVA-2020-NL-1801861

PATIENT
  Sex: Male
  Weight: 78 kg

DRUGS (6)
  1. XARELTO [Concomitant]
     Active Substance: RIVAROXABAN
     Dosage: 20 MG, THERAPY START DATE: ASKED BUT UNKNOWN, THERAPY END DATE: ASKED BUT UNKNOWN
  2. TAMSULOSINE [Suspect]
     Active Substance: TAMSULOSIN HYDROCHLORIDE
     Indication: MICTURITION DISORDER
     Dosage: .4 MILLIGRAM DAILY;
     Dates: start: 20200525, end: 20200613
  3. FOSTER (BECLOMETASON/FORMOTEROL) [Concomitant]
     Dosage: 1 DOSAGE FORM, AEROSOL, 100/6 UG / DOSE, THERAPY START DATE: ASKED BUT UNKNOWN, THERAPY END DATE: AS
  4. CANDASARTAN [Concomitant]
     Dosage: 8 MG, THERAPY START DATE: ASKED BUT UNKNOWN, THERAPY END DATE: ASKED BUT UNKNOWN
  5. PANTOPRAZOL [Concomitant]
     Active Substance: PANTOPRAZOLE SODIUM
     Dosage: 20 MG, THERAPY START DATE: ASKED BUT UNKNOWN, THERAPY END DATE: ASKED BUT UNKNOWN
  6. NIFIDEPINE [Concomitant]
     Dosage: 8 MG, THERAPY START DATE: ASKED BUT UNKNOWN, THERAPY END DATE: ASKED BUT UNKNOWN

REACTIONS (5)
  - Malaise [Unknown]
  - Alopecia [Not Recovered/Not Resolved]
  - Libido decreased [Unknown]
  - Erectile dysfunction [Unknown]
  - Insomnia [Unknown]
